FAERS Safety Report 8346113-3 (Version None)
Quarter: 2012Q2

REPORT INFORMATION
  Report Type: 
  Country: None (occurrence: None)
  Receive Date: 20120509
  Receipt Date: 20120427
  Transmission Date: 20120825
  Serious: Yes (Other)
  Sender: FDA-Public Use
  Company Number: CA-JNJFOC-20120414106

PATIENT
  Sex: Male
  Weight: 60 kg

DRUGS (5)
  1. PAXIL [Concomitant]
     Route: 065
  2. REMICADE [Suspect]
     Route: 042
     Dates: start: 20120427
  3. GRAVOL TAB [Concomitant]
     Indication: PREMEDICATION
     Route: 065
  4. REMICADE [Suspect]
     Indication: CROHN'S DISEASE
     Route: 042
     Dates: start: 20120411
  5. BENADRYL [Concomitant]
     Indication: PREMEDICATION
     Route: 065

REACTIONS (2)
  - INFUSION RELATED REACTION [None]
  - PANIC ATTACK [None]
